FAERS Safety Report 4629004-0 (Version None)
Quarter: 2005Q2

REPORT INFORMATION
  Report Type: 
  Country: None (occurrence: None)
  Receive Date: 20050407
  Receipt Date: 20050323
  Transmission Date: 20051028
  Serious: Yes (Other)
  Sender: FDA-Public Use
  Company Number: AU-JNJFOC-20050307639

PATIENT
  Age: 56 Year
  Sex: Male
  Weight: 80 kg

DRUGS (2)
  1. REMICADE [Suspect]
     Route: 042
  2. DIPENTUM [Concomitant]
     Route: 049

REACTIONS (2)
  - ARTHRITIS [None]
  - LUPUS-LIKE SYNDROME [None]
